FAERS Safety Report 9408917 (Version 3)
Quarter: 2013Q3

REPORT INFORMATION
  Report Type: Report from Study
  Country: JP (occurrence: JP)
  Receive Date: 20130719
  Receipt Date: 20130820
  Transmission Date: 20140515
  Serious: Yes (Hospitalization)
  Sender: FDA-Public Use
  Company Number: JP-TEVA-419922ISR

PATIENT
  Age: 71 Year
  Sex: Male

DRUGS (27)
  1. CISPLATIN [Suspect]
     Indication: GASTROOESOPHAGEAL CANCER
     Dosage: DAILY DOSE: 45.6 MG\BODY
     Dates: start: 20130523, end: 20130613
  2. IRINOTECAN HYDROCHLORIDE [Suspect]
     Indication: GASTROOESOPHAGEAL CANCER
     Dosage: 92.7 MILLIGRAM DAILY; DAILY DOSE: 92.7 MG\BODY
     Dates: start: 20130523, end: 20130613
  3. IPILIMUMAB 620 MG [Suspect]
     Indication: GASTROOESOPHAGEAL CANCER
     Dosage: 10 MG/KG DAILY; CYCLE 1
     Route: 042
     Dates: start: 20130402
  4. IPILIMUMAB 620 MG [Suspect]
     Dosage: 10 MG/KG DAILY; CYCLE 2
     Route: 042
     Dates: start: 20130423
  5. METHYLPREDNISOLONE SODIUM SUCCINATE 60 MG [Concomitant]
     Dosage: METHYLPREDNISOLONE 60 MG AND SODIUM SUCCINATE 60 MG.
     Dates: start: 20130513, end: 20130515
  6. LANSOPRAZOLE [Concomitant]
     Dates: start: 20121024
  7. AMLODIPINE BESILATE [Concomitant]
     Dates: start: 20121112
  8. LOXOPROFEN SODIUM [Concomitant]
     Dates: start: 20121126
  9. HEPARINOID [Concomitant]
     Dates: start: 20121218
  10. SPIRONOLACTONE [Concomitant]
     Dates: start: 20130423
  11. HYDROXYZINE PAMOATE 25 MG [Concomitant]
     Dates: start: 20130513
  12. INTRALIPOS [Concomitant]
     Dosage: SOYA OIL INJECTION 10% 100 ML
     Dates: start: 20130513
  13. FULCALIQ [Concomitant]
     Dates: start: 20130514
  14. MAGNESIUM OXIDE [Concomitant]
     Dates: start: 20121113
  15. GLUCOSE [Concomitant]
  16. ELEMENMIC [Concomitant]
  17. PREDNISOLONE [Concomitant]
     Dosage: 30 MILLIGRAM DAILY;
     Dates: start: 20130515, end: 20130614
  18. MULTIPLE VITAMINS [Concomitant]
  19. ACETAMINOPHEN [Concomitant]
  20. SULBACTAM SODIUM [Concomitant]
  21. CEFTAZIDIME [Concomitant]
  22. CIPROFLOXACIN [Concomitant]
  23. AMLODIPINE BESILATE/LISINOPRIL [Concomitant]
     Dates: start: 20121112
  24. DIPHENHYDRAMINE [Concomitant]
     Dates: start: 20130423
  25. FEXOFENADINE HYDROCHLORIDE [Concomitant]
     Dates: start: 20130423
  26. FUROSEMIDE [Concomitant]
     Dates: start: 20130423
  27. BROTIZOLAM [Concomitant]
     Dates: start: 20130517

REACTIONS (3)
  - Fatigue [Recovered/Resolved]
  - Decreased appetite [Not Recovered/Not Resolved]
  - Pyrexia [Not Recovered/Not Resolved]
